FAERS Safety Report 12606796 (Version 2)
Quarter: 2016Q4

REPORT INFORMATION
  Report Type: Spontaneous
  Country: FR (occurrence: FR)
  Receive Date: 20160729
  Receipt Date: 20161019
  Transmission Date: 20170207
  Serious: Yes (Death, Life-Threatening, Hospitalization, Other)
  Sender: FDA-Public Use
  Company Number: FR-NOVOPROD-502293

PATIENT
  Age: 37 Year
  Sex: Female

DRUGS (10)
  1. EXACYL [Suspect]
     Active Substance: TRANEXAMIC ACID
     Indication: POSTPARTUM HAEMORRHAGE
     Dosage: 5 G/DOSE
     Route: 042
     Dates: start: 20160623
  2. ROCEPHINE [Suspect]
     Active Substance: CEFTRIAXONE SODIUM
     Indication: PYELONEPHRITIS
     Dosage: UNK
     Route: 065
     Dates: start: 20160623, end: 20160704
  3. GENTAMICINE                        /00047101/ [Suspect]
     Active Substance: GENTAMICIN
     Indication: PYELONEPHRITIS
     Dosage: UNK
     Route: 065
     Dates: start: 20160623, end: 20160624
  4. FRESH FROZEN PLASMA [Concomitant]
     Active Substance: HUMAN PLASMA
     Indication: POSTPARTUM HAEMORRHAGE
     Dosage: 17 PACKETS
     Route: 065
     Dates: start: 20160623
  5. RED BLOOD CELLS [Concomitant]
     Active Substance: HUMAN RED BLOOD CELL
     Indication: POSTPARTUM HAEMORRHAGE
     Dosage: 17 PACKETS
     Route: 065
     Dates: start: 20160623
  6. NOVOSEVEN [Suspect]
     Active Substance: COAGULATION FACTOR VIIA RECOMBINANT HUMAN
     Indication: POSTPARTUM HAEMORRHAGE
     Dosage: 20 MG
     Route: 065
     Dates: start: 20160623
  7. FIBRINOGEN [Concomitant]
     Active Substance: FIBRINOGEN HUMAN
     Indication: POSTPARTUM HAEMORRHAGE
     Dosage: 12 G
     Route: 065
     Dates: start: 20160623
  8. FLAGYL [Suspect]
     Active Substance: METRONIDAZOLE\METRONIDAZOLE HYDROCHLORIDE
     Indication: PYELONEPHRITIS
     Dosage: UNK
     Route: 065
     Dates: start: 20160623, end: 20160625
  9. NALADOR [Suspect]
     Active Substance: SULPROSTONE
     Indication: POSTPARTUM HAEMORRHAGE
     Dosage: 5 G
     Route: 065
     Dates: start: 20160623
  10. ROCEPHINE [Suspect]
     Active Substance: CEFTRIAXONE SODIUM
     Indication: ESCHERICHIA BACTERAEMIA

REACTIONS (8)
  - Pulmonary oedema [Unknown]
  - Off label use [Unknown]
  - Brain hypoxia [Fatal]
  - Renal cortical necrosis [Fatal]
  - Renal failure [Fatal]
  - Anuria [Not Recovered/Not Resolved]
  - Cardio-respiratory arrest [Unknown]
  - Dialysis [Not Recovered/Not Resolved]

NARRATIVE: CASE EVENT DATE: 201606
